FAERS Safety Report 8778172 (Version 3)
Quarter: 2012Q4

REPORT INFORMATION
  Report Type: 
  Country: GB (occurrence: GB)
  Receive Date: 20120911
  Receipt Date: 20121108
  Transmission Date: 20130627
  Serious: Yes (Hospitalization, Other)
  Sender: FDA-Public Use
  Company Number: GB-RANBAXY-2012R1-59630

PATIENT
  Age: 28 Year
  Sex: Female

DRUGS (3)
  1. RISPERIDONE [Suspect]
     Indication: SCHIZOPHRENIA
     Dosage: 2 mg, qd
     Route: 048
     Dates: start: 201206
  2. RISPERDAL CONSTA [Suspect]
     Indication: SCHIZOPHRENIA, PARANOID TYPE
     Dosage: 50 mg, Fortnight
     Route: 030
     Dates: start: 201205
  3. RISPERDAL CONSTA [Suspect]
     Dosage: 37.5 mg, Fortnight
     Route: 030
     Dates: end: 201205

REACTIONS (1)
  - Schizophrenia [Recovering/Resolving]
